FAERS Safety Report 12211330 (Version 1)
Quarter: 2016Q1

REPORT INFORMATION
  Report Type: Spontaneous
  Country: US (occurrence: None)
  Receive Date: 20160324
  Receipt Date: 20160324
  Transmission Date: 20160526
  Serious: No
  Sender: FDA-Public Use
  Company Number: None

PATIENT
  Age: 61 Year
  Sex: Female

DRUGS (13)
  1. SINGULAIR [Concomitant]
     Active Substance: MONTELUKAST SODIUM
  2. ALBUTEROL. [Concomitant]
     Active Substance: ALBUTEROL
  3. VERAPAMIL [Concomitant]
     Active Substance: VERAPAMIL HYDROCHLORIDE
  4. VITAMIN B1 [Concomitant]
     Active Substance: THIAMINE HYDROCHLORIDE
  5. HCTZ [Concomitant]
     Active Substance: HYDROCHLOROTHIAZIDE
  6. SYNTHROID [Concomitant]
     Active Substance: LEVOTHYROXINE SODIUM
  7. ASPIRIN. [Concomitant]
     Active Substance: ASPIRIN
  8. NORCO [Concomitant]
     Active Substance: ACETAMINOPHEN\HYDROCODONE BITARTRATE
  9. LORAZEPAM. [Concomitant]
     Active Substance: LORAZEPAM
  10. OMEPRAZOLE. [Concomitant]
     Active Substance: OMEPRAZOLE
  11. IPTRATROPIUM [Concomitant]
  12. SUTENT [Suspect]
     Active Substance: SUNITINIB MALATE
     Indication: RENAL CANCER
     Dosage: 25 MG PO DAILY FOR 28 DAYS EVERY 6 WEEKS
     Route: 048
     Dates: start: 20150602
  13. SYMBICORT [Concomitant]
     Active Substance: BUDESONIDE\FORMOTEROL FUMARATE DIHYDRATE

REACTIONS (3)
  - Myalgia [None]
  - Arthralgia [None]
  - Bone pain [None]

NARRATIVE: CASE EVENT DATE: 20160323
